FAERS Safety Report 7237452-8 (Version None)
Quarter: 2011Q1

REPORT INFORMATION
  Report Type: 
  Country: None (occurrence: None)
  Receive Date: 20110121
  Receipt Date: 20110113
  Transmission Date: 20110831
  Serious: Yes (Life-Threatening)
  Sender: FDA-Public Use
  Company Number: GB-MILLENNIUM PHARMACEUTICALS, INC.-2011-00186

PATIENT

DRUGS (3)
  1. ACYCLOVIR [Concomitant]
     Dosage: 200 MG, UNK
     Route: 048
  2. VELCADE [Suspect]
     Indication: MULTIPLE MYELOMA
     Dosage: 2.6 MG, UNK
     Route: 042
     Dates: start: 20101028
  3. DEXAMETHASONE [Concomitant]
     Dosage: 8 MG, UNK
     Route: 048

REACTIONS (3)
  - VENOUS THROMBOSIS [None]
  - DYSPNOEA [None]
  - PULMONARY EMBOLISM [None]
